FAERS Safety Report 14568232 (Version 1)
Quarter: 2018Q1

REPORT INFORMATION
  Report Type: Report from Study
  Country: ES (occurrence: ES)
  Receive Date: 20180223
  Receipt Date: 20180223
  Transmission Date: 20180509
  Serious: Yes (Hospitalization)
  Sender: FDA-Public Use
  Company Number: ES-TEVA-2018-ES-859133

PATIENT
  Age: 2 Year
  Sex: Male
  Weight: 13.5 kg

DRUGS (7)
  1. ACICLOVIR (201A) [Concomitant]
     Indication: PROPHYLAXIS
     Route: 048
     Dates: start: 201612
  2. ERWINA - ERWINASE 10.000 UI INYECTABLE [REINO UNIDO] [Suspect]
     Active Substance: ASPARAGINASE
     Indication: ACUTE LYMPHOCYTIC LEUKAEMIA
     Route: 030
     Dates: start: 20170418, end: 20170429
  3. OMEPRAZOL (2141A) [Concomitant]
     Active Substance: OMEPRAZOLE
     Indication: PROPHYLAXIS
     Route: 048
     Dates: start: 20170418, end: 20170509
  4. VINCRISTINA SULFATO (809SU) [Suspect]
     Active Substance: VINCRISTINE SULFATE
     Indication: ACUTE LYMPHOCYTIC LEUKAEMIA
     Route: 042
     Dates: start: 20170418, end: 20170425
  5. DOXORUBICINA (202A) [Suspect]
     Active Substance: DOXORUBICIN HYDROCHLORIDE
     Indication: ACUTE LYMPHOCYTIC LEUKAEMIA
     Route: 042
     Dates: start: 20170418, end: 20170425
  6. FORTECORTIN 1 MG COMPRIMIDOS [Suspect]
     Active Substance: DEXAMETHASONE
     Indication: ACUTE LYMPHOCYTIC LEUKAEMIA
     Route: 048
     Dates: start: 20170418, end: 20170504
  7. SEPTRIN PEDIATRICO 8 MG/40 MG/ML [Concomitant]
     Indication: PROPHYLAXIS
     Route: 048
     Dates: start: 201612

REACTIONS (2)
  - Respiratory tract infection viral [Recovered/Resolved]
  - Febrile neutropenia [Recovered/Resolved]

NARRATIVE: CASE EVENT DATE: 20170505
